FAERS Safety Report 21040343 (Version 1)
Quarter: 2022Q3

REPORT INFORMATION
  Report Type: Spontaneous
  Country: FR (occurrence: FR)
  Receive Date: 20220704
  Receipt Date: 20220704
  Transmission Date: 20221027
  Serious: Yes (Hospitalization)
  Sender: FDA-Public Use
  Company Number: None

PATIENT
  Age: 4 Year
  Sex: Male
  Weight: 15 kg

DRUGS (2)
  1. RISPERDAL [Suspect]
     Active Substance: RISPERIDONE
     Indication: Accidental exposure to product by child
     Dosage: TWO CHILDREN WOULD HAVE SHARED 9 TABLETS OF RISPERDAL 2 MG
     Route: 048
     Dates: start: 20220530, end: 20220530
  2. PREDNISOLONE SODIUM METAZOATE [Suspect]
     Active Substance: PREDNISOLONE SODIUM METAZOATE
     Indication: Accidental exposure to product by child
     Dosage: TWO CHILDREN WOULD HAVE SHARED 4 TABLETS OF SOLUPRED 5 MG
     Route: 048
     Dates: start: 20220530, end: 20220530

REACTIONS (4)
  - Somnolence [Recovered/Resolved]
  - Epilepsy [Recovered/Resolved]
  - Accidental exposure to product by child [Recovered/Resolved]
  - Tachycardia [Recovered/Resolved]

NARRATIVE: CASE EVENT DATE: 20220530
